FAERS Safety Report 11653246 (Version 1)
Quarter: 2015Q4

REPORT INFORMATION
  Report Type: Spontaneous
  Country: US (occurrence: None)
  Receive Date: 20151022
  Receipt Date: 20151022
  Transmission Date: 20160304
  Serious: Yes (Life-Threatening, Hospitalization, Disabling)
  Sender: FDA-Public Use
  Company Number: None

PATIENT
  Age: 62 Year
  Sex: Female
  Weight: 68.04 kg

DRUGS (2)
  1. BISOPROLOL FUMARATE. [Suspect]
     Active Substance: BISOPROLOL FUMARATE
     Indication: HEART RATE IRREGULAR
     Dosage: 1/2 TABLET ONCE DAILY TAKEN BY MOUTH
     Route: 048
  2. ASPIRIN. [Concomitant]
     Active Substance: ASPIRIN

REACTIONS (13)
  - Paraesthesia [None]
  - Feeling abnormal [None]
  - Dysuria [None]
  - Hypotension [None]
  - Fatigue [None]
  - Depressed mood [None]
  - Hypoaesthesia [None]
  - Dizziness [None]
  - Amnesia [None]
  - Confusional state [None]
  - Blood urine present [None]
  - Pollakiuria [None]
  - Transient ischaemic attack [None]

NARRATIVE: CASE EVENT DATE: 20150814
